FAERS Safety Report 6980670-4 (Version None)
Quarter: 2010Q3

REPORT INFORMATION
  Report Type: 
  Country: None (occurrence: None)
  Receive Date: 20100914
  Receipt Date: 20100902
  Transmission Date: 20110219
  Serious: Yes (Other)
  Sender: FDA-Public Use
  Company Number: US-PFIZER INC-2010025940

PATIENT
  Sex: Female

DRUGS (14)
  1. CHANTIX [Suspect]
     Indication: SMOKING CESSATION THERAPY
     Dosage: STARTER PACK AND CONTINUOUS PACK
     Dates: start: 20080101, end: 20080401
  2. ALBUTEROL [Concomitant]
     Indication: ASTHMA
     Dosage: UNK
     Dates: start: 20061101, end: 20091001
  3. AMITRIPTYLINE [Concomitant]
     Indication: DEPRESSION
     Dosage: UNK
     Dates: start: 20080101, end: 20080301
  4. AMOXICILLIN [Concomitant]
     Indication: ANTIBIOTIC THERAPY
     Dosage: UNK
     Dates: start: 20030201, end: 20100101
  5. CEPHALEXIN [Concomitant]
     Indication: SINUSITIS
     Dosage: UNK
     Dates: start: 20040101, end: 20090701
  6. CIPRODEX [Concomitant]
     Indication: SINUSITIS
     Dosage: UNK
     Dates: start: 20040301, end: 20090801
  7. CYCLOBENZAPRINE [Concomitant]
     Indication: MUSCLE RELAXANT THERAPY
     Dosage: UNK
     Dates: start: 20030201, end: 20091201
  8. CYCLOBENZAPRINE [Concomitant]
     Indication: ANALGESIC THERAPY
  9. FLUCONAZOLE [Concomitant]
     Indication: ANTIBIOTIC THERAPY
     Dosage: UNK
     Dates: start: 20051001, end: 20100101
  10. LEXAPRO [Concomitant]
     Indication: SMOKING CESSATION THERAPY
     Dosage: UNK
     Dates: end: 20090101
  11. OXYBUTYNIN [Concomitant]
     Indication: HYPERTONIC BLADDER
     Dosage: UNK
     Dates: start: 20050301, end: 20100101
  12. PREMARIN [Concomitant]
     Indication: HORMONE THERAPY
     Dosage: UNK
     Dates: start: 20030201, end: 20081201
  13. PROMETHAZINE [Concomitant]
     Indication: SINUSITIS
     Dosage: UNK
     Dates: start: 20030801, end: 20100101
  14. TRIAZOLAM [Concomitant]
     Indication: INSOMNIA
     Dosage: UNK
     Dates: start: 20061201, end: 20080601

REACTIONS (11)
  - ANXIETY [None]
  - AUTONOMIC NERVOUS SYSTEM IMBALANCE [None]
  - CHILLS [None]
  - DEPRESSION [None]
  - DIZZINESS [None]
  - DYSPNOEA [None]
  - INSOMNIA [None]
  - LOSS OF CONSCIOUSNESS [None]
  - MEMORY IMPAIRMENT [None]
  - MENTAL DISORDER [None]
  - RASH GENERALISED [None]
